FAERS Safety Report 23055310 (Version 1)
Quarter: 2023Q4

REPORT INFORMATION
  Report Type: Spontaneous
  Country: US (occurrence: US)
  Receive Date: 20231011
  Receipt Date: 20231011
  Transmission Date: 20240110
  Serious: No
  Sender: FDA-Public Use
  Company Number: US-FreseniusKabi-FK202316066

PATIENT

DRUGS (2)
  1. SMOFLIPID [Suspect]
     Active Substance: FISH OIL\MEDIUM-CHAIN TRIGLYCERIDES\OLIVE OIL\SOYBEAN OIL
     Indication: Product used for unknown indication
  2. OMEGAVEN [Suspect]
     Active Substance: FISH OIL
     Indication: Product used for unknown indication

REACTIONS (1)
  - Drug hypersensitivity [Unknown]
